FAERS Safety Report 6805329-5 (Version None)
Quarter: 2010Q2

REPORT INFORMATION
  Report Type: 
  Country: None (occurrence: None)
  Receive Date: 20100628
  Receipt Date: 20071119
  Transmission Date: 20101027
  Serious: No
  Sender: FDA-Public Use
  Company Number: US-PFIZER INC-2007078961

PATIENT
  Sex: Female

DRUGS (13)
  1. MYCOBUTIN [Suspect]
     Indication: CROHN'S DISEASE
     Dates: end: 20070910
  2. TYLENOL [Concomitant]
  3. ATIVAN [Concomitant]
  4. ALL OTHER THERAPEUTIC PRODUCTS [Concomitant]
  5. DARVOCET [Concomitant]
  6. FOLIC ACID [Concomitant]
  7. LEXAPRO [Concomitant]
  8. SYNTHROID [Concomitant]
  9. VITAMIN B-12 [Concomitant]
  10. LORTAB [Concomitant]
  11. NEXIUM [Concomitant]
  12. POTASSIUM CHLORIDE [Concomitant]
  13. HUMIRA [Concomitant]

REACTIONS (1)
  - SKIN DISCOLOURATION [None]
